FAERS Safety Report 6457505-1 (Version None)
Quarter: 2009Q4

REPORT INFORMATION
  Report Type: 
  Country: None (occurrence: None)
  Receive Date: 20091125
  Receipt Date: 20091118
  Transmission Date: 20100525
  Serious: Yes (Other)
  Sender: FDA-Public Use
  Company Number: JP-PFIZER INC-2009300948

PATIENT
  Sex: Female

DRUGS (1)
  1. CARDENALIN [Suspect]
     Dosage: 1 MG, UNK
     Route: 048

REACTIONS (5)
  - CRANIAL NERVE DISORDER [None]
  - NAIL DISORDER [None]
  - ONYCHALGIA [None]
  - SUDDEN HEARING LOSS [None]
  - VERTIGO [None]
